FAERS Safety Report 24587576 (Version 1)
Quarter: 2024Q4

REPORT INFORMATION
  Report Type: Spontaneous
  Country: DE (occurrence: DE)
  Receive Date: 20241107
  Receipt Date: 20241107
  Transmission Date: 20250115
  Serious: Yes (Other)
  Sender: REGENERON
  Company Number: DE-BAYER-2024A157906

PATIENT
  Sex: Female

DRUGS (1)
  1. EYLEA [Suspect]
     Active Substance: AFLIBERCEPT
     Indication: Age-related macular degeneration
     Dosage: 8 DF; 40 MG/ML

REACTIONS (3)
  - Skin haemorrhage [Unknown]
  - Erythema [Unknown]
  - Rash macular [Unknown]
